APPROVED DRUG PRODUCT: TELMISARTAN
Active Ingredient: TELMISARTAN
Strength: 20MG
Dosage Form/Route: TABLET;ORAL
Application: A207843 | Product #001
Applicant: HISUN PHARMACEUTICAL HANGZHOU CO LTD
Approved: Feb 19, 2019 | RLD: No | RS: No | Type: DISCN